FAERS Safety Report 6653532-X (Version None)
Quarter: 2010Q1

REPORT INFORMATION
  Report Type: 
  Country: None (occurrence: None)
  Receive Date: 20100323
  Receipt Date: 20100323
  Transmission Date: 20100710
  Serious: No
  Sender: FDA-Public Use
  Company Number: None

PATIENT
  Age: 67 Year
  Sex: Female

DRUGS (9)
  1. AUGMENTIN '125' [Suspect]
     Dosage: 875MG BID
     Dates: start: 20080617, end: 20080708
  2. PREDNISONE TAB [Concomitant]
  3. CIPROFLOXACIN [Concomitant]
  4. AVELOX [Concomitant]
  5. NORVASC [Concomitant]
  6. BENICAR HCT [Concomitant]
  7. BONIVA [Concomitant]
  8. ALBUTEROL [Concomitant]
  9. ADVAIR DISKUS 100/50 [Concomitant]

REACTIONS (21)
  - ABDOMINAL PAIN LOWER [None]
  - ALANINE AMINOTRANSFERASE INCREASED [None]
  - ASPARTATE AMINOTRANSFERASE INCREASED [None]
  - ASTHENIA [None]
  - BILIRUBIN CONJUGATED INCREASED [None]
  - BLOOD ALKALINE PHOSPHATASE INCREASED [None]
  - BLOOD BILIRUBIN INCREASED [None]
  - CHROMATURIA [None]
  - DECREASED APPETITE [None]
  - EXERCISE TOLERANCE DECREASED [None]
  - FATIGUE [None]
  - HEPATOTOXICITY [None]
  - HYPOTENSION [None]
  - JAUNDICE [None]
  - MALAISE [None]
  - MIXED LIVER INJURY [None]
  - NAUSEA [None]
  - PRURITUS [None]
  - PYREXIA [None]
  - RASH MACULO-PAPULAR [None]
  - VOMITING [None]
